FAERS Safety Report 8061946-9 (Version None)
Quarter: 2012Q1

REPORT INFORMATION
  Report Type: 
  Country: None (occurrence: None)
  Receive Date: 20120123
  Receipt Date: 20120111
  Transmission Date: 20120608
  Serious: Yes (Hospitalization, Other)
  Sender: FDA-Public Use
  Company Number: US-BAYER-2011-037608

PATIENT
  Age: 22 Year
  Sex: Female
  Weight: 57 kg

DRUGS (3)
  1. AMBIEN [Concomitant]
     Indication: INSOMNIA
     Dosage: 10 MG, HS
     Route: 048
  2. YAZ [Suspect]
     Dosage: UNK
     Route: 048
     Dates: start: 20060101, end: 20090801
  3. ADDERALL 5 [Concomitant]
     Indication: ATTENTION DEFICIT/HYPERACTIVITY DISORDER
     Dosage: 20 MG, UNK
     Route: 048

REACTIONS (11)
  - BILIARY DYSKINESIA [None]
  - ANXIETY [None]
  - MULTIPLE INJURIES [None]
  - CHOLECYSTITIS [None]
  - GALLBLADDER DISORDER [None]
  - EMOTIONAL DISTRESS [None]
  - ORGAN FAILURE [None]
  - GENERAL PHYSICAL HEALTH DETERIORATION [None]
  - ANHEDONIA [None]
  - WEIGHT FLUCTUATION [None]
  - PAIN [None]
